FAERS Safety Report 22309705 (Version 1)
Quarter: 2023Q2

REPORT INFORMATION
  Report Type: Report from Study
  Country: US (occurrence: US)
  Receive Date: 20230511
  Receipt Date: 20230511
  Transmission Date: 20230721
  Serious: Yes (Hospitalization)
  Sender: FDA-Public Use
  Company Number: US-JNJFOC-20230515459

PATIENT
  Sex: Male
  Weight: 99.8 kg

DRUGS (5)
  1. APALUTAMIDE [Suspect]
     Active Substance: APALUTAMIDE
     Indication: Prostate cancer
     Dosage: PER SUBJECT HE HAS MISSED 4 DOSES TO DATE.
     Route: 048
     Dates: start: 20230308, end: 20230424
  2. DEGARELIX [Suspect]
     Active Substance: DEGARELIX
     Indication: Prostate cancer
     Dosage: PRIOR TO RANDOMIZATION
     Route: 065
     Dates: start: 20230207
  3. DEGARELIX [Suspect]
     Active Substance: DEGARELIX
     Dosage: MAINTANENCE DOSE
     Route: 065
     Dates: start: 20230310
  4. DEGARELIX [Suspect]
     Active Substance: DEGARELIX
     Dosage: MAINTANENCE DOSE
     Route: 065
     Dates: start: 20230407
  5. DEGARELIX [Suspect]
     Active Substance: DEGARELIX
     Route: 065
     Dates: start: 20230207

REACTIONS (2)
  - Dehydration [Recovered/Resolved]
  - Diarrhoea [Recovered/Resolved]

NARRATIVE: CASE EVENT DATE: 20230424
